FAERS Safety Report 7962840-1 (Version None)
Quarter: 2011Q4

REPORT INFORMATION
  Report Type: 
  Country: None (occurrence: None)
  Receive Date: 20111207
  Receipt Date: 20111205
  Transmission Date: 20120403
  Serious: Yes (Other)
  Sender: FDA-Public Use
  Company Number: BR-PFIZER INC-2011296966

PATIENT
  Age: 58 Year
  Sex: Female
  Weight: 64.3 kg

DRUGS (6)
  1. HYDROCHLOROTHIAZIDE [Concomitant]
     Indication: BLOOD PRESSURE INCREASED
     Dosage: UNK
  2. VARENICLINE TARTRATE [Suspect]
     Indication: SMOKING CESSATION THERAPY
     Dosage: UNK
     Route: 048
     Dates: start: 20111116
  3. DIOVAN [Concomitant]
     Indication: BLOOD PRESSURE INCREASED
     Dosage: 320 MG, 1X/DAY
     Dates: start: 20040101
  4. ATENOLOL [Concomitant]
     Indication: BLOOD PRESSURE INCREASED
     Dosage: 50 MG, 1X/DAY
     Dates: start: 19960101
  5. PRESSAT [Concomitant]
     Indication: BLOOD PRESSURE INCREASED
     Dosage: 10 MG, 1X/DAY
     Dates: start: 20080101
  6. CARDIZEM [Concomitant]
     Indication: BLOOD PRESSURE INCREASED
     Dosage: 240 MG, 1X/DAY

REACTIONS (1)
  - BLOOD PRESSURE INCREASED [None]
